FAERS Safety Report 6126249-8 (Version None)
Quarter: 2009Q1

REPORT INFORMATION
  Report Type: 
  Country: None (occurrence: None)
  Receive Date: 20090320
  Receipt Date: 20090310
  Transmission Date: 20090719
  Serious: Yes (Hospitalization)
  Sender: FDA-Public Use
  Company Number: FR-ELI_LILLY_AND_COMPANY-FR200903002320

PATIENT
  Age: 45 Year
  Sex: Male

DRUGS (1)
  1. CYMBALTA [Suspect]
     Indication: DEPRESSION
     Dosage: 60 MG, DAILY (1/D)
     Route: 048

REACTIONS (6)
  - ABNORMAL BEHAVIOUR [None]
  - FEELING ABNORMAL [None]
  - HALLUCINATION, VISUAL [None]
  - MANIA [None]
  - PERSECUTORY DELUSION [None]
  - SOMATOFORM DISORDER NEUROLOGIC [None]
